FAERS Safety Report 8508472-8 (Version None)
Quarter: 2012Q3

REPORT INFORMATION
  Report Type: 
  Country: None (occurrence: None)
  Receive Date: 20120713
  Receipt Date: 20120709
  Transmission Date: 20120928
  Serious: Yes (Hospitalization)
  Sender: FDA-Public Use
  Company Number: US-BAYER-2011-122475

PATIENT
  Age: 41 Year
  Sex: Female
  Weight: 54 kg

DRUGS (9)
  1. YASMIN [Suspect]
     Indication: ACNE
  2. OXYCODONE HCL [Concomitant]
  3. MOTRIN [Concomitant]
  4. MOBIC [Concomitant]
     Indication: PAIN
     Dosage: 7.5 MG TWICE A DAY WITH FOOD P.R.N., BID
  5. VICODIN [Concomitant]
     Indication: PAIN
     Dosage: 5/500MG EVERY 4 HOURS, PRN
  6. YASMIN [Suspect]
     Indication: CONTRACEPTION
     Dosage: UNK
     Dates: start: 20050101, end: 20060101
  7. ALBUTEROL [Concomitant]
     Indication: BRONCHITIS
     Dosage: 17 G, UNK
     Route: 045
     Dates: start: 20060419
  8. NAPROSYN [Concomitant]
  9. AZITHROMYCIN [Concomitant]
     Indication: BRONCHITIS
     Dosage: 250 MG, UNK
     Route: 048
     Dates: start: 20060409

REACTIONS (9)
  - PULMONARY EMBOLISM [None]
  - GENERAL PHYSICAL HEALTH DETERIORATION [None]
  - EMOTIONAL DISTRESS [None]
  - ANHEDONIA [None]
  - PAIN [None]
  - DEPRESSION [None]
  - FATIGUE [None]
  - INJURY [None]
  - ANXIETY [None]
